FAERS Safety Report 21109835 (Version 2)
Quarter: 2022Q3

REPORT INFORMATION
  Report Type: Spontaneous
  Country: US (occurrence: US)
  Receive Date: 20220721
  Receipt Date: 20220822
  Transmission Date: 20221027
  Serious: Yes (Hospitalization, Other)
  Sender: FDA-Public Use
  Company Number: US-JNJFOC-20220739030

PATIENT
  Age: 67 Year
  Sex: Female
  Weight: 81.720 kg

DRUGS (1)
  1. XARELTO [Suspect]
     Active Substance: RIVAROXABAN
     Indication: Pulmonary embolism
     Route: 048

REACTIONS (3)
  - Pulmonary embolism [Unknown]
  - Sternal fracture [Unknown]
  - Breast cyst [Unknown]
